FAERS Safety Report 10616322 (Version 1)
Quarter: 2014Q4

REPORT INFORMATION
  Report Type: Spontaneous
  Country: BR (occurrence: BR)
  Receive Date: 20141201
  Receipt Date: 20141201
  Transmission Date: 20150529
  Serious: Yes (Other)
  Sender: FDA-Public Use
  Company Number: BR-PFIZER INC-2014325916

PATIENT
  Age: 69 Year
  Sex: Male
  Weight: 60 kg

DRUGS (1)
  1. SUTENT [Suspect]
     Active Substance: SUNITINIB MALATE
     Indication: PANCREATIC NEUROENDOCRINE TUMOUR
     Dosage: 37.5 MG, CONTINUOUS
     Route: 048
     Dates: start: 20130307, end: 20141115

REACTIONS (6)
  - Haemoglobin decreased [Not Recovered/Not Resolved]
  - Disease progression [Unknown]
  - Immunodeficiency [Unknown]
  - Pancreatic neuroendocrine tumour [Unknown]
  - Cholecystitis [Not Recovered/Not Resolved]
  - Infection [Unknown]
